FAERS Safety Report 7687220-8 (Version None)
Quarter: 2011Q3

REPORT INFORMATION
  Report Type: 
  Country: None (occurrence: None)
  Receive Date: 20110816
  Receipt Date: 20110801
  Transmission Date: 20111222
  Serious: Yes (Hospitalization)
  Sender: FDA-Public Use
  Company Number: TW-WATSON-2011-12770

PATIENT
  Age: 58 Year
  Sex: Female

DRUGS (4)
  1. BUSPIRONE HCL [Suspect]
     Indication: PRODUCT USED FOR UNKNOWN INDICATION
     Dosage: 300 MG,  (300 TABLETS OF 10 MG)
     Route: 048
  2. SULPIRIDE [Suspect]
     Indication: PRODUCT USED FOR UNKNOWN INDICATION
     Dosage: 3100 MG, (31 TABLETS OF 100 MG)
     Route: 048
  3. LORAZEPAM [Suspect]
     Indication: PRODUCT USED FOR UNKNOWN INDICATION
     Dosage: 28 MG, (56 TABLETS OF 0.5 MG)
     Route: 048
  4. DULOXETIME HYDROCHLORIDE [Suspect]
     Indication: PRODUCT USED FOR UNKNOWN INDICATION
     Dosage: 840 MG, (28 CAPSULES OF 30 MG)
     Route: 048

REACTIONS (10)
  - COMA [None]
  - GASTROINTESTINAL SOUNDS ABNORMAL [None]
  - MYOCLONUS [None]
  - MULTIPLE DRUG OVERDOSE [None]
  - NYSTAGMUS [None]
  - HYPERREFLEXIA [None]
  - BEZOAR [None]
  - CHILLS [None]
  - HYPERHIDROSIS [None]
  - DYSPHAGIA [None]
